FAERS Safety Report 10190007 (Version 1)
Quarter: 2014Q2

REPORT INFORMATION
  Report Type: Spontaneous
  Country: US (occurrence: US)
  Receive Date: 20140522
  Receipt Date: 20140522
  Transmission Date: 20141212
  Serious: Yes (Hospitalization, Other)
  Sender: FDA-Public Use
  Company Number: US-ELI_LILLY_AND_COMPANY-US201405003846

PATIENT
  Age: 88 Year
  Sex: Female
  Weight: 53.52 kg

DRUGS (3)
  1. HUMALOG 50% LISPRO, 50% NPL [Suspect]
     Indication: TYPE 2 DIABETES MELLITUS
     Dosage: UNK, BID
     Route: 065
     Dates: start: 2004
  2. HUMALOG 50% LISPRO, 50% NPL [Suspect]
     Dosage: UNK, BID
     Route: 065
  3. INSULIN HUMAN [Suspect]
     Indication: PRODUCT USED FOR UNKNOWN INDICATION
     Route: 065

REACTIONS (14)
  - Dementia [Unknown]
  - Pneumonia [Unknown]
  - Dementia Alzheimer^s type [Unknown]
  - Blood glucose increased [Unknown]
  - Glycosylated haemoglobin increased [Unknown]
  - Weight increased [Unknown]
  - Stress [Recovered/Resolved]
  - Anger [Recovered/Resolved]
  - Confusional state [Unknown]
  - Fall [Unknown]
  - Ankle fracture [Unknown]
  - Confusional state [Recovered/Resolved]
  - Wrong drug administered [Recovered/Resolved]
  - Incorrect product storage [Unknown]
